FAERS Safety Report 10245929 (Version 1)
Quarter: 2014Q2

REPORT INFORMATION
  Report Type: Spontaneous
  Country: US (occurrence: US)
  Receive Date: 20140619
  Receipt Date: 20140619
  Transmission Date: 20141212
  Serious: Yes (Other)
  Sender: FDA-Public Use
  Company Number: US-AMGEN-USASP2014045523

PATIENT
  Age: 66 Year
  Sex: Male

DRUGS (1)
  1. ENBREL [Suspect]
     Indication: REITER^S SYNDROME
     Dosage: 50 MG, QWK
     Route: 058

REACTIONS (1)
  - Surgery [Unknown]
